FAERS Safety Report 7235126-0 (Version None)
Quarter: 2011Q1

REPORT INFORMATION
  Report Type: 
  Country: None (occurrence: None)
  Receive Date: 20110107
  Receipt Date: 20101227
  Transmission Date: 20110831
  Serious: Yes (Life-Threatening, Hospitalization)
  Sender: FDA-Public Use
  Company Number: UTC-003725

PATIENT
  Age: 70 Year
  Sex: Male
  Weight: 84.1 kg

DRUGS (2)
  1. REMODULIN [Suspect]
     Indication: PULMONARY HYPERTENSION
     Dosage: 7.2 UG/KG (0.005 UG/KG,1 IN 1 MIN),SUBCUTANEOUS
     Route: 058
     Dates: start: 20101208
  2. DIURETICS (DIURETICS) [Concomitant]

REACTIONS (4)
  - HAEMATEMESIS [None]
  - MELAENA [None]
  - HAEMORRHAGE [None]
  - DEVICE MALFUNCTION [None]
